FAERS Safety Report 17500674 (Version 1)
Quarter: 2020Q1

REPORT INFORMATION
  Report Type: Spontaneous
  Country: FR (occurrence: FR)
  Receive Date: 20200305
  Receipt Date: 20200305
  Transmission Date: 20200409
  Serious: Yes (Other)
  Sender: FDA-Public Use
  Company Number: FR-TEVA-2020-FR-1194822

PATIENT
  Age: 46 Year
  Sex: Female

DRUGS (2)
  1. ANDROCUR 50 MG, COMPRIME [Suspect]
     Active Substance: CYPROTERONE ACETATE
     Indication: HYPERANDROGENISM
     Dosage: DURING 21 DAYS PER MONTH
     Route: 048
     Dates: start: 2002, end: 2016
  2. ESTREVA (ESTRADIOL THERAMEX) [Suspect]
     Active Substance: ESTRADIOL
     Indication: PRODUCT USED FOR UNKNOWN INDICATION
     Dosage: UNSPECIFIED / 21 DAYS MONTHLY
     Route: 065
     Dates: start: 2002, end: 2016

REACTIONS (1)
  - Meningioma [Not Recovered/Not Resolved]

NARRATIVE: CASE EVENT DATE: 201812
